FAERS Safety Report 9913148 (Version 1)
Quarter: 2014Q1

REPORT INFORMATION
  Report Type: Spontaneous
  Country: US (occurrence: None)
  Receive Date: 20140218
  Receipt Date: 20140218
  Transmission Date: 20141002
  Serious: Yes (Disabling)
  Sender: FDA-Public Use
  Company Number: None

PATIENT
  Age: 65 Year
  Sex: Male
  Weight: 68.95 kg

DRUGS (9)
  1. FORTESTA [Suspect]
     Indication: BLOOD TESTOSTERONE DECREASED
     Dosage: 2 PUMPS EACH
     Route: 061
     Dates: start: 20130730, end: 20140123
  2. FORTESTA [Suspect]
     Indication: SEXUAL DYSFUNCTION
     Dosage: 2 PUMPS EACH
     Route: 061
     Dates: start: 20130730, end: 20140123
  3. PACEMAKER [Concomitant]
  4. TOPROL [Concomitant]
  5. FLORINEF [Concomitant]
  6. XARELTO [Concomitant]
  7. MIRALAX [Concomitant]
  8. RESTORIL [Concomitant]
  9. LITROSONE [Concomitant]

REACTIONS (15)
  - Eating disorder [None]
  - Abdominal pain [None]
  - Fluid retention [None]
  - Localised intraabdominal fluid collection [None]
  - Drug ineffective [None]
  - Pruritus [None]
  - Rash [None]
  - Local swelling [None]
  - Local swelling [None]
  - Chest pain [None]
  - Weight increased [None]
  - Dysuria [None]
  - Arthralgia [None]
  - Headache [None]
  - Abdominal pain upper [None]
